FAERS Safety Report 6146373-3 (Version None)
Quarter: 2009Q2

REPORT INFORMATION
  Report Type: 
  Country: None (occurrence: None)
  Receive Date: 20090403
  Receipt Date: 20090403
  Transmission Date: 20091009
  Serious: No
  Sender: FDA-Public Use
  Company Number: None

PATIENT
  Sex: Male
  Weight: 102.0593 kg

DRUGS (1)
  1. FLOMAX [Suspect]
     Indication: BENIGN PROSTATIC HYPERPLASIA
     Dosage: 0.4 1 X DAY ORAL (DURATION: EVERY DAY SINCE 12/08)
     Route: 048
     Dates: start: 20081201

REACTIONS (3)
  - ANXIETY [None]
  - DEPRESSION [None]
  - TINNITUS [None]
